FAERS Safety Report 4866719-3 (Version None)
Quarter: 2005Q4

REPORT INFORMATION
  Report Type: 
  Country: None (occurrence: None)
  Receive Date: 20051221
  Receipt Date: 20051129
  Transmission Date: 20060501
  Serious: Yes (Hospitalization)
  Sender: FDA-Public Use
  Company Number: US016518

PATIENT
  Age: 30 Year
  Sex: Male
  Weight: 81 kg

DRUGS (6)
  1. ARSENIC TRIOXIDE [Suspect]
     Indication: ACUTE PROMYELOCYTIC LEUKAEMIA
     Dosage: 12 MG QD INTRAVENOUS DRIP
     Route: 041
     Dates: start: 20050719, end: 20050723
  2. ARSENIC TRIOXIDE [Suspect]
     Indication: ACUTE PROMYELOCYTIC LEUKAEMIA
     Dosage: 12 MG QD INTRAVENOUS DRIP
     Route: 041
     Dates: start: 20050802, end: 20050811
  3. ARSENIC TRIOXIDE [Suspect]
     Indication: ACUTE PROMYELOCYTIC LEUKAEMIA
     Dosage: 12 MG QD INTRAVENOUS DRIP
     Route: 041
     Dates: start: 20050822, end: 20050901
  4. RISPERIDONE [Concomitant]
  5. CHLORPROMAZINE HCL [Concomitant]
  6. LORAZEPAM [Concomitant]

REACTIONS (4)
  - BLOOD CREATINE PHOSPHOKINASE INCREASED [None]
  - CONVULSION [None]
  - HEART RATE INCREASED [None]
  - LOSS OF CONSCIOUSNESS [None]
